FAERS Safety Report 15786313 (Version 4)
Quarter: 2019Q1

REPORT INFORMATION
  Report Type: Report from Study
  Country: JP (occurrence: JP)
  Receive Date: 20190103
  Receipt Date: 20190218
  Transmission Date: 20190417
  Serious: Yes (Hospitalization, Other)
  Sender: FDA-Public Use
  Company Number: JP-SAKK-2018SA394736AA

PATIENT
  Age: 74 Year
  Sex: Male

DRUGS (15)
  1. LOXOPROFEN [LOXOPROFEN SODIUM] [Concomitant]
     Active Substance: LOXOPROFEN SODIUM
     Indication: RHEUMATOID ARTHRITIS
     Dosage: 60 MG, TID
     Route: 065
  2. FUROSEMIDE. [Concomitant]
     Active Substance: FUROSEMIDE
     Indication: PRODUCT USED FOR UNKNOWN INDICATION
     Dosage: UNK
     Route: 048
     Dates: start: 20180810, end: 20181220
  3. BREDININ [Suspect]
     Active Substance: MIZORIBINE
     Indication: PRODUCT USED FOR UNKNOWN INDICATION
     Route: 065
  4. TACROLIMUS. [Concomitant]
     Active Substance: TACROLIMUS
     Indication: RHEUMATOID ARTHRITIS
     Dosage: 1 MG, QD
     Route: 065
     Dates: start: 20180418, end: 20181205
  5. AZOSEMIDE [Concomitant]
     Active Substance: AZOSEMIDE
     Dosage: UNK
     Route: 048
     Dates: start: 20181224
  6. BISOPROLOL FUMARATE. [Concomitant]
     Active Substance: BISOPROLOL FUMARATE
     Indication: PRODUCT USED FOR UNKNOWN INDICATION
     Dosage: UNK
     Route: 048
     Dates: start: 20180810
  7. SARILUMAB [Suspect]
     Active Substance: SARILUMAB
     Indication: RHEUMATOID ARTHRITIS
     Dosage: 200 MG, QOW
     Route: 058
     Dates: start: 20180912, end: 20181219
  8. ENALAPRIL [ENALAPRIL MALEATE] [Concomitant]
     Indication: PRODUCT USED FOR UNKNOWN INDICATION
     Dosage: UNK
     Route: 048
     Dates: start: 20180113
  9. IGURATIMOD [Concomitant]
     Active Substance: IGURATIMOD
     Indication: RHEUMATOID ARTHRITIS
     Dosage: 25 MG, BID
     Route: 065
     Dates: start: 20160810
  10. AZOSEMIDE [Concomitant]
     Active Substance: AZOSEMIDE
     Indication: CARDIAC FAILURE CHRONIC
     Dosage: UNK
     Route: 048
     Dates: start: 20181010, end: 20181220
  11. MARZULENE-S [Concomitant]
     Active Substance: SODIUM GUALENATE
     Indication: PRODUCT USED FOR UNKNOWN INDICATION
     Dosage: UNK
     Route: 048
  12. OMEPRAL [OMEPRAZOLE] [Concomitant]
     Indication: PRODUCT USED FOR UNKNOWN INDICATION
     Dosage: UNK
     Route: 048
  13. MIZORIBINE [Suspect]
     Active Substance: MIZORIBINE
     Indication: RHEUMATOID ARTHRITIS
     Dosage: 100 MG, QD
     Route: 065
     Dates: start: 20171025, end: 20181220
  14. CARERAM [Suspect]
     Active Substance: IGURATIMOD
     Indication: PRODUCT USED FOR UNKNOWN INDICATION
     Route: 065
  15. DICLOFENAC SODIUM. [Concomitant]
     Active Substance: DICLOFENAC SODIUM
     Indication: RHEUMATOID ARTHRITIS
     Dosage: 30 MG, QD
     Route: 065

REACTIONS (1)
  - Erythema multiforme [Recovering/Resolving]

NARRATIVE: CASE EVENT DATE: 20181220
